FAERS Safety Report 12426156 (Version 2)
Quarter: 2016Q2

REPORT INFORMATION
  Report Type: Report from Study
  Country: CA (occurrence: CA)
  Receive Date: 20160601
  Receipt Date: 20160624
  Transmission Date: 20160815
  Serious: Yes (Other)
  Sender: FDA-Public Use
  Company Number: CA-JNJFOC-20160519463

PATIENT
  Age: 46 Year
  Sex: Female
  Weight: 57.2 kg

DRUGS (4)
  1. TECTA [Concomitant]
     Active Substance: PANTOPRAZOLE MAGNESIUM
     Route: 065
  2. REMICADE [Suspect]
     Active Substance: INFLIXIMAB
     Indication: CROHN^S DISEASE
     Route: 042
  3. PREVACID [Concomitant]
     Active Substance: LANSOPRAZOLE
     Route: 065
  4. REMICADE [Suspect]
     Active Substance: INFLIXIMAB
     Indication: CROHN^S DISEASE
     Route: 042

REACTIONS (9)
  - Intestinal resection [Unknown]
  - Abdominal pain [Recovering/Resolving]
  - Product use issue [Unknown]
  - Haemoglobin decreased [Unknown]
  - Off label use [Unknown]
  - Diarrhoea [Recovering/Resolving]
  - Mineral supplementation [Unknown]
  - Abdominal discomfort [Unknown]
  - Frequent bowel movements [Recovered/Resolved]

NARRATIVE: CASE EVENT DATE: 20141127
